FAERS Safety Report 5874887-X (Version None)
Quarter: 2008Q3

REPORT INFORMATION
  Report Type: 
  Country: None (occurrence: None)
  Receive Date: 20080904
  Receipt Date: 20080829
  Transmission Date: 20090109
  Serious: Yes (Death, Hospitalization)
  Sender: FDA-Public Use
  Company Number: 2008SP016701

PATIENT
  Age: 71 Year
  Sex: Male

DRUGS (6)
  1. TEMODAL [Suspect]
     Indication: GLIOBLASTOMA
     Dosage: MG; QD; PO
     Route: 048
  2. ZOFRAN [Concomitant]
  3. NOVALGIN [Concomitant]
  4. COTRIM [Concomitant]
  5. NEXIUM [Concomitant]
  6. DEXAMETHASONE [Concomitant]

REACTIONS (6)
  - BONE MARROW FAILURE [None]
  - CLOSTRIDIAL INFECTION [None]
  - CONDITION AGGRAVATED [None]
  - DISEASE PROGRESSION [None]
  - EPSTEIN-BARR VIRUS INFECTION [None]
  - GLIOBLASTOMA [None]
